FAERS Safety Report 8046512-3 (Version None)
Quarter: 2012Q1

REPORT INFORMATION
  Report Type: 
  Country: None (occurrence: None)
  Receive Date: 20120113
  Receipt Date: 20120104
  Transmission Date: 20120608
  Serious: Yes (Other)
  Sender: FDA-Public Use
  Company Number: DK-ABBOTT-12P-044-0889179-00

PATIENT
  Sex: Male
  Weight: 115 kg

DRUGS (6)
  1. METHOTREXATE [Concomitant]
     Dates: start: 20110414
  2. METHOTREXATE [Concomitant]
     Indication: PSORIASIS
     Dates: start: 20090101, end: 20110214
  3. HUMIRA [Suspect]
     Indication: PSORIASIS
     Route: 058
     Dates: start: 20100212, end: 20110201
  4. ALL OTHER NON-THERAPEUTIC PRODUCTS [Concomitant]
     Indication: PSORIASIS
     Dates: start: 20110610, end: 20110918
  5. ALL OTHER NON-THERAPEUTIC PRODUCTS [Concomitant]
     Dates: start: 20110919
  6. COMMERCIAL HUMIRA [Concomitant]
     Indication: PSORIASIS
     Route: 058
     Dates: start: 20070115

REACTIONS (1)
  - COLON CANCER [None]
